FAERS Safety Report 5327241-3 (Version None)
Quarter: 2007Q2

REPORT INFORMATION
  Report Type: 
  Country: None (occurrence: None)
  Receive Date: 20070517
  Receipt Date: 20070510
  Transmission Date: 20071010
  Serious: Yes (Hospitalization)
  Sender: FDA-Public Use
  Company Number: FR-AVENTIS-200711648FR

PATIENT
  Age: 44 Year
  Sex: Female

DRUGS (4)
  1. LOVENOX [Suspect]
     Indication: PULMONARY EMBOLISM
     Route: 048
     Dates: start: 20070131
  2. PREVISCAN                          /00789001/ [Suspect]
     Indication: PULMONARY EMBOLISM
     Route: 048
     Dates: start: 20070131, end: 20070202
  3. PREVISCAN                          /00789001/ [Suspect]
     Route: 048
     Dates: start: 20070203, end: 20070203
  4. ARIXTRA [Concomitant]
     Indication: DRUG USE FOR UNKNOWN INDICATION
     Route: 042
     Dates: start: 20070131, end: 20070131

REACTIONS (3)
  - HEPATITIS [None]
  - VASCULAR PURPURA [None]
  - VENOUS THROMBOSIS LIMB [None]
